FAERS Safety Report 7482996-7 (Version None)
Quarter: 2011Q2

REPORT INFORMATION
  Report Type: 
  Country: None (occurrence: None)
  Receive Date: 20110516
  Receipt Date: 20110414
  Transmission Date: 20111010
  Serious: No
  Sender: FDA-Public Use
  Company Number: US-BAYER-2011-033421

PATIENT
  Age: 59 Year
  Sex: Female

DRUGS (2)
  1. ALEVE (CAPLET) [Suspect]
     Indication: ARTHRITIS
     Dosage: 440 MG, QD
     Route: 048
     Dates: start: 20090420
  2. PHENYLALANINE [Concomitant]

REACTIONS (1)
  - CHEST DISCOMFORT [None]
